FAERS Safety Report 5997931-8 (Version None)
Quarter: 2008Q4

REPORT INFORMATION
  Report Type: 
  Country: None (occurrence: None)
  Receive Date: 20081212
  Receipt Date: 20081125
  Transmission Date: 20090506
  Serious: No
  Sender: FDA-Public Use
  Company Number: US-ABBOTT-08P-163-0489886-00

PATIENT
  Sex: Female
  Weight: 56.75 kg

DRUGS (5)
  1. HUMIRA [Suspect]
     Indication: RHEUMATOID ARTHRITIS
     Route: 058
     Dates: start: 20070701, end: 20080501
  2. HUMIRA [Suspect]
     Route: 058
     Dates: start: 20080501
  3. MESALAMINE [Concomitant]
     Indication: RHEUMATOID ARTHRITIS
  4. OMEPRAZOLE MAGNESIUM [Concomitant]
     Indication: CROHN'S DISEASE
  5. NABUMETONE [Concomitant]
     Indication: RHEUMATOID ARTHRITIS

REACTIONS (4)
  - ARTHRALGIA [None]
  - DRUG INEFFECTIVE [None]
  - JOINT ANKYLOSIS [None]
  - JOINT SWELLING [None]
